FAERS Safety Report 18594048 (Version 1)
Quarter: 2020Q4

REPORT INFORMATION
  Report Type: Report from Study
  Country: BR (occurrence: BR)
  Receive Date: 20201209
  Receipt Date: 20201209
  Transmission Date: 20210114
  Serious: Yes (Hospitalization, Disabling)
  Sender: FDA-Public Use
  Company Number: NVSC2020BR321207

PATIENT
  Age: 60 Year
  Sex: Female

DRUGS (1)
  1. COSENTYX [Suspect]
     Active Substance: SECUKINUMAB
     Indication: PSORIATIC ARTHROPATHY
     Dosage: 150 MG (ONE PEN)
     Route: 065
     Dates: start: 20190417

REACTIONS (10)
  - Limb injury [Recovering/Resolving]
  - Discomfort [Unknown]
  - Sensitive skin [Unknown]
  - Pain [Unknown]
  - Product dose omission issue [Unknown]
  - Pain in extremity [Unknown]
  - Erythema [Unknown]
  - Pruritus [Unknown]
  - Gait disturbance [Unknown]
  - Swelling [Unknown]

NARRATIVE: CASE EVENT DATE: 20200905
